FAERS Safety Report 18412595 (Version 2)
Quarter: 2020Q4

REPORT INFORMATION
  Report Type: Spontaneous
  Country: US (occurrence: US)
  Receive Date: 20201021
  Receipt Date: 20201023
  Transmission Date: 20210114
  Serious: Yes (Other)
  Sender: FDA-Public Use
  Company Number: US-PFIZER INC-2020405321

PATIENT
  Age: 81 Year
  Sex: Male

DRUGS (1)
  1. BRAFTOVI [Suspect]
     Active Substance: ENCORAFENIB
     Indication: COLON CANCER
     Dosage: UNK, DAILY(3-4 PER DAY)

REACTIONS (4)
  - Off label use [Unknown]
  - Malignant melanoma [Unknown]
  - Product use in unapproved indication [Unknown]
  - Second primary malignancy [Unknown]
